FAERS Safety Report 18313860 (Version 1)
Quarter: 2020Q3

REPORT INFORMATION
  Report Type: Spontaneous
  Country: ID (occurrence: ID)
  Receive Date: 20200925
  Receipt Date: 20200925
  Transmission Date: 20201103
  Serious: Yes (Death, Hospitalization)
  Sender: FDA-Public Use
  Company Number: ID-JNJFOC-20200931380

PATIENT
  Age: 52 Year
  Sex: Male
  Weight: 49 kg

DRUGS (1)
  1. BEDAQUILINE [Suspect]
     Active Substance: BEDAQUILINE
     Indication: TUBERCULOSIS
     Route: 048
     Dates: start: 20190805

REACTIONS (6)
  - Blood glucose increased [Unknown]
  - Weight decreased [Unknown]
  - Electrocardiogram QT prolonged [Recovering/Resolving]
  - Death [Fatal]
  - Vomiting [Unknown]
  - Nausea [Unknown]

NARRATIVE: CASE EVENT DATE: 20190905
